FAERS Safety Report 22656435 (Version 1)
Quarter: 2023Q2

REPORT INFORMATION
  Report Type: Spontaneous
  Country: FR (occurrence: FR)
  Receive Date: 20230629
  Receipt Date: 20230629
  Transmission Date: 20230722
  Serious: Yes (Hospitalization, Other)
  Sender: FDA-Public Use
  Company Number: FR-CELLTRION INC.-2023FR011117

PATIENT

DRUGS (3)
  1. YUFLYMA [Suspect]
     Active Substance: ADALIMUMAB-AATY
     Indication: Crohn^s disease
     Dosage: 80 MG, 2 SUBCUTANEOUS (SC) INJECTIONS OF 80 MG, THEN 1 SC INJECTION OF 80 MG TWO WEEKS LATER
     Route: 058
     Dates: start: 202303
  2. YUFLYMA [Suspect]
     Active Substance: ADALIMUMAB-AATY
     Dosage: 40 MG, Q2WEEKS, EVERY TWO WEEKS WITH 1 SC INJECTION OF 40 MG
     Route: 058
  3. YUFLYMA [Suspect]
     Active Substance: ADALIMUMAB-AATY
     Dosage: 40 MG, SECOND INJECTION OF 40 MG SC WAS GIVEN, 3 DAYS AFTER A 40 MG INJECTION HAD BEEN GIVEN NORMALL
     Route: 058
     Dates: start: 20230512

REACTIONS (5)
  - Lung neoplasm malignant [Unknown]
  - Hypersensitivity [Recovering/Resolving]
  - Breath sounds abnormal [Recovering/Resolving]
  - Productive cough [Recovering/Resolving]
  - Intentional product use issue [Unknown]

NARRATIVE: CASE EVENT DATE: 20230512
